FAERS Safety Report 14765624 (Version 4)
Quarter: 2018Q2

REPORT INFORMATION
  Report Type: Spontaneous
  Country: ES (occurrence: ES)
  Receive Date: 20180416
  Receipt Date: 20180501
  Transmission Date: 20180711
  Serious: Yes (Other)
  Sender: FDA-Public Use
  Company Number: ES-009507513-1804ESP003881

PATIENT
  Age: 34 Year
  Sex: Female

DRUGS (2)
  1. NUVARING [Suspect]
     Active Substance: ETHINYL ESTRADIOL\ETONOGESTREL
     Dosage: VAGINAL RING
     Route: 067
     Dates: start: 20180316
  2. NUVARING [Suspect]
     Active Substance: ETHINYL ESTRADIOL\ETONOGESTREL
     Indication: MENOMETRORRHAGIA
     Dosage: VAGINAL RING
     Route: 067
     Dates: start: 2015, end: 2017

REACTIONS (5)
  - Periarthritis [Unknown]
  - Menstruation delayed [Recovered/Resolved]
  - Neuralgic amyotrophy [Unknown]
  - Product use in unapproved indication [Unknown]
  - Metrorrhagia [Recovered/Resolved]

NARRATIVE: CASE EVENT DATE: 2015
